FAERS Safety Report 5807989-4 (Version None)
Quarter: 2008Q3

REPORT INFORMATION
  Report Type: 
  Country: None (occurrence: None)
  Receive Date: 20080708
  Receipt Date: 20080625
  Transmission Date: 20090109
  Serious: Yes (Other)
  Sender: FDA-Public Use
  Company Number: US023922

PATIENT
  Sex: Male

DRUGS (5)
  1. PROVIGIL [Suspect]
     Indication: NARCOLEPSY
     Dosage: 100 MG QD ORAL
     Route: 048
     Dates: start: 20080530
  2. ASPIRIN [Concomitant]
  3. CLOPIDOGREL [Concomitant]
  4. LOSARTAN POTASSIUM [Concomitant]
  5. SERETIDE [Concomitant]

REACTIONS (2)
  - CARDIAC FAILURE [None]
  - CONDITION AGGRAVATED [None]
